FAERS Safety Report 4731695-0 (Version None)
Quarter: 2005Q3

REPORT INFORMATION
  Report Type: 
  Country: None (occurrence: None)
  Receive Date: 20050725
  Receipt Date: 20040915
  Transmission Date: 20060218
  Serious: Yes (Disabling)
  Sender: FDA-Public Use
  Company Number: WAES 0306USA00877

PATIENT
  Age: 44 Year
  Sex: Male
  Weight: 113.3993 kg

DRUGS (3)
  1. VIOXX [Suspect]
     Indication: BACK PAIN
     Dosage: 50 MG/DAILY/PO
     Route: 048
     Dates: start: 20000802, end: 20011009
  2. VIOXX [Suspect]
     Indication: PAIN
     Dosage: 50 MG/DAILY/PO
     Route: 048
     Dates: start: 20000802, end: 20011009
  3. TYLENOL W/ CODEINE NO. 4 [Concomitant]

REACTIONS (7)
  - ABDOMINAL PAIN [None]
  - ADVERSE DRUG REACTION [None]
  - ADVERSE EVENT [None]
  - CERVICOBRACHIAL SYNDROME [None]
  - FACET JOINT SYNDROME [None]
  - HYPERTENSION [None]
  - NASOPHARYNGITIS [None]
